FAERS Safety Report 6386915-6 (Version None)
Quarter: 2009Q4

REPORT INFORMATION
  Report Type: 
  Country: None (occurrence: None)
  Receive Date: 20091002
  Receipt Date: 20090924
  Transmission Date: 20100525
  Serious: No
  Sender: FDA-Public Use
  Company Number: B0595132A

PATIENT
  Age: 17 Year
  Sex: Female

DRUGS (2)
  1. RELENZA [Suspect]
     Dosage: 20MG PER DAY
     Route: 055
     Dates: start: 20090924, end: 20090924
  2. RELENZA [Suspect]
     Dosage: 10MG PER DAY
     Route: 055
     Dates: start: 20090922

REACTIONS (2)
  - NO ADVERSE EVENT [None]
  - OVERDOSE [None]
